FAERS Safety Report 16388512 (Version 1)
Quarter: 2019Q2

REPORT INFORMATION
  Report Type: Spontaneous
  Country: CN (occurrence: CN)
  Receive Date: 20190604
  Receipt Date: 20190604
  Transmission Date: 20190711
  Serious: Yes (Hospitalization)
  Sender: FDA-Public Use
  Company Number: CN-EPIC PHARMA LLC-2019EPC00146

PATIENT
  Age: 53 Year
  Sex: Female

DRUGS (4)
  1. ROPIVACAINE. [Suspect]
     Active Substance: ROPIVACAINE HYDROCHLORIDE
     Indication: CANCER PAIN
     Dosage: 1 MG/ML WITH 0.2 ML BOLUS WITH 2-HOURLOCKOUT
     Route: 037
     Dates: start: 20160520, end: 201606
  2. MORPHINE SULFATE. [Suspect]
     Active Substance: MORPHINE SULFATE
     Indication: CANCER PAIN
     Dosage: 0.2 ML/H
     Route: 037
     Dates: start: 20160520, end: 201606
  3. MORPHINE SULFATE. [Suspect]
     Active Substance: MORPHINE SULFATE
     Dosage: 2 ML FOR BOLUS AND RATE; SIX HOURS AFTER REFIL: 12 MG
     Route: 037
     Dates: start: 201606, end: 201606
  4. ROPIVACAINE. [Suspect]
     Active Substance: ROPIVACAINE HYDROCHLORIDE
     Dosage: 2 ML FOR BOTH BOLUS AND RATE; SIX HOURS: 6 MG
     Route: 037
     Dates: start: 201606, end: 201606

REACTIONS (2)
  - Incorrect dose administered [Recovered/Resolved]
  - Myoclonus [Recovered/Resolved]
